FAERS Safety Report 9939974 (Version 2)
Quarter: 2014Q1

REPORT INFORMATION
  Report Type: Report from Study
  Country: US (occurrence: US)
  Receive Date: 20140303
  Receipt Date: 20140303
  Transmission Date: 20141002
  Serious: Yes (Hospitalization)
  Sender: FDA-Public Use
  Company Number: US-ABBVIE-13P-163-1034153-00

PATIENT
  Age: 53 Year
  Sex: Female
  Weight: 56.75 kg

DRUGS (7)
  1. HUMIRA PEN [Suspect]
     Indication: RHEUMATOID ARTHRITIS
     Dates: start: 201109
  2. METHOTREXATE [Concomitant]
     Indication: RHEUMATOID ARTHRITIS
  3. NEXIUM [Concomitant]
     Indication: GASTROOESOPHAGEAL REFLUX DISEASE
  4. LEUKOVORIN [Concomitant]
     Indication: VITAMIN SUPPLEMENTATION
  5. VITAMIN C [Concomitant]
     Indication: VITAMIN SUPPLEMENTATION
  6. ASPIRIN [Concomitant]
     Indication: PRODUCT USED FOR UNKNOWN INDICATION
  7. VITAMIN D NOS [Concomitant]
     Indication: HYPOVITAMINOSIS

REACTIONS (5)
  - Arthritis [Recovered/Resolved]
  - Device related infection [Recovered/Resolved]
  - Sinusitis [Not Recovered/Not Resolved]
  - Bronchitis [Not Recovered/Not Resolved]
  - Weight increased [Not Recovered/Not Resolved]
